FAERS Safety Report 12803793 (Version 3)
Quarter: 2017Q1

REPORT INFORMATION
  Report Type: Report from Study
  Country: AU (occurrence: AU)
  Receive Date: 20161003
  Receipt Date: 20170105
  Transmission Date: 20170428
  Serious: Yes (Death, Other)
  Sender: FDA-Public Use
  Company Number: PHHY2016AU020047

PATIENT
  Age: 36 Year
  Sex: Female
  Weight: 117 kg

DRUGS (12)
  1. AMILORIDE [Concomitant]
     Active Substance: AMILORIDE
     Indication: PULMONARY ARTERIAL HYPERTENSION
     Dosage: 5 MG, UNK
     Route: 065
     Dates: start: 20160822
  2. AMILORIDE [Concomitant]
     Active Substance: AMILORIDE
     Dosage: 3 UNK, UNK
     Route: 065
  3. STI571 [Suspect]
     Active Substance: IMATINIB MESYLATE
     Dosage: 300 MG, QD
     Route: 048
  4. OXYGEN. [Concomitant]
     Active Substance: OXYGEN
     Indication: PULMONARY ARTERIAL HYPERTENSION
     Dosage: 3 L TO 4L, UNK
     Route: 065
  5. OXYGEN. [Concomitant]
     Active Substance: OXYGEN
     Dosage: 2 L/MIN, NOCTE
     Route: 065
     Dates: start: 20100206
  6. RIOCIGUAT [Concomitant]
     Active Substance: RIOCIGUAT
     Indication: PULMONARY ARTERIAL HYPERTENSION
     Dosage: 2.5 MG, TID
     Route: 065
     Dates: start: 20100802
  7. SPIRONOLACTONE. [Concomitant]
     Active Substance: SPIRONOLACTONE
     Indication: PULMONARY ARTERIAL HYPERTENSION
     Dosage: 25 MG, UNK
     Route: 065
     Dates: start: 20131014
  8. HYDROCHLOROTHIAZIDE. [Concomitant]
     Active Substance: HYDROCHLOROTHIAZIDE
     Indication: PRODUCT USED FOR UNKNOWN INDICATION
     Route: 065
  9. STI571 [Suspect]
     Active Substance: IMATINIB MESYLATE
     Indication: PULMONARY ARTERIAL HYPERTENSION
     Dosage: UNK
     Route: 048
  10. AMBRISENTAN [Concomitant]
     Active Substance: AMBRISENTAN
     Indication: PULMONARY ARTERIAL HYPERTENSION
     Dosage: 10 MG, QD
     Route: 065
     Dates: start: 20150220
  11. SLOW K [Concomitant]
     Active Substance: POTASSIUM CHLORIDE
     Indication: PRODUCT USED FOR UNKNOWN INDICATION
     Dosage: 25 DF, QD
     Route: 065
  12. FRUSEMIDE [Concomitant]
     Active Substance: FUROSEMIDE
     Indication: PRODUCT USED FOR UNKNOWN INDICATION
     Route: 065

REACTIONS (18)
  - Bundle branch block right [Unknown]
  - Oedema peripheral [Unknown]
  - Right ventricular failure [Fatal]
  - Hypokalaemia [Unknown]
  - Dilatation ventricular [Unknown]
  - Gastroenteritis [Recovered/Resolved]
  - Pulmonary arterial hypertension [Fatal]
  - Hyperkalaemia [Recovered/Resolved]
  - Arrhythmia supraventricular [Fatal]
  - Tricuspid valve incompetence [Unknown]
  - Venous pressure jugular increased [Unknown]
  - C-reactive protein increased [Unknown]
  - Product use issue [Unknown]
  - Right atrial dilatation [Unknown]
  - Blood pressure diastolic decreased [Unknown]
  - Gamma-glutamyltransferase increased [Unknown]
  - Fall [Unknown]
  - Systolic dysfunction [Unknown]

NARRATIVE: CASE EVENT DATE: 201606
